FAERS Safety Report 8796666 (Version 2)
Quarter: 2014Q1

REPORT INFORMATION
  Report Type: Report from Study
  Country: US (occurrence: US)
  Receive Date: 20120917
  Receipt Date: 20140115
  Transmission Date: 20141002
  Serious: Yes (Death, Other)
  Sender: FDA-Public Use
  Company Number: US-ROCHE-1128464

PATIENT
  Age: 61 Year
  Sex: Female

DRUGS (12)
  1. AVASTIN [Suspect]
     Indication: SOFT TISSUE CANCER
     Dosage: INFUSED OVER 60 MINS AT 100MLS/HR.  THE PATIENT RECEIVED DOSE ON 09/FEB/2011,09/MAR/2011, 23/MAR/201
     Route: 042
  2. AVASTIN [Suspect]
     Indication: HEPATIC CANCER
     Dosage: INFUSED OVER 60 MINS AT 66.66 MLS/HR.  THE PATIENT RECEIVED DOSE ON 11/MAY/2011
     Route: 042
  3. AVASTIN [Suspect]
     Indication: LEIOMYOSARCOMA
  4. NACL .9% [Concomitant]
     Route: 065
  5. ZANTAC [Concomitant]
     Route: 042
  6. TAXOL [Concomitant]
     Route: 042
  7. DEXAMETHASONE [Concomitant]
     Route: 042
  8. ONDANSETRON [Concomitant]
     Route: 042
  9. METOCLOPRAMIDE [Concomitant]
     Dosage: AS REQUIRED
     Route: 042
  10. CLONIDINE [Concomitant]
     Dosage: AS REQUIRED
     Route: 048
  11. FAMOTIDINE [Concomitant]
     Route: 042
  12. DASATINIB [Concomitant]
     Route: 048

REACTIONS (3)
  - Death [Fatal]
  - Papillary thyroid cancer [Unknown]
  - Nausea [Unknown]
